FAERS Safety Report 12982644 (Version 1)
Quarter: 2016Q4

REPORT INFORMATION
  Report Type: Spontaneous
  Country: US (occurrence: US)
  Receive Date: 20161129
  Receipt Date: 20161129
  Transmission Date: 20170207
  Serious: No
  Sender: FDA-Public Use
  Company Number: US-GLAXOSMITHKLINE-US2016174332

PATIENT
  Sex: Male

DRUGS (1)
  1. OMEGA-3-ACID ETHYL ESTERS CAPSULE [Suspect]
     Active Substance: OMEGA-3-ACID ETHYL ESTERS
     Indication: INTERVERTEBRAL DISC DEGENERATION
     Dosage: 2 G, QD
     Route: 048

REACTIONS (4)
  - Malaise [Recovered/Resolved]
  - Off label use [Unknown]
  - Drug ineffective [Recovered/Resolved]
  - Underdose [Unknown]
